FAERS Safety Report 7984641-0 (Version None)
Quarter: 2011Q4

REPORT INFORMATION
  Report Type: 
  Country: None (occurrence: None)
  Receive Date: 20111214
  Receipt Date: 20111130
  Transmission Date: 20120403
  Serious: Yes (Hospitalization, Other)
  Sender: FDA-Public Use
  Company Number: 20110807

PATIENT
  Age: 56 Year
  Sex: Female

DRUGS (3)
  1. LIDOCAINE HYDROCHLORIDE [Suspect]
     Dosage: EPIDURAL
     Route: 008
     Dates: start: 20110906, end: 20110906
  2. LIDOCAINE HYDROCHLORIDE [Suspect]
     Dates: start: 20110906, end: 20110906
  3. LIDOCAINE HYDROCHLORIDE [Suspect]
     Dosage: 10 MG/ML  INJECTION NOS INTRA-ARTICULAR
     Route: 014
     Dates: start: 20110920, end: 20110920

REACTIONS (6)
  - PARASPINAL ABSCESS [None]
  - PRODUCT QUALITY ISSUE [None]
  - SUBCUTANEOUS ABSCESS [None]
  - OFF LABEL USE [None]
  - CONDITION AGGRAVATED [None]
  - PAIN [None]
